FAERS Safety Report 9036917 (Version 1)
Quarter: 2013Q1

REPORT INFORMATION
  Report Type: Report from Study
  Country: US (occurrence: US)
  Receive Date: 20130129
  Receipt Date: 20130129
  Transmission Date: 20140127
  Serious: No
  Sender: FDA-Public Use
  Company Number: US-ABBOTT-11P-163-0887680-00

PATIENT
  Age: 20 Year
  Sex: Male

DRUGS (1)
  1. HUMIRA 40 MG/0.8 ML PEN [Suspect]
     Indication: PSORIASIS
     Dates: start: 20111207

REACTIONS (7)
  - Erythema [Recovering/Resolving]
  - Erythema [Recovering/Resolving]
  - Furuncle [None]
  - Staphylococcal infection [Recovering/Resolving]
  - Feeling abnormal [Recovered/Resolved]
  - Surgery [Recovering/Resolving]
  - Infection [Not Recovered/Not Resolved]
